FAERS Safety Report 8342881-5 (Version None)
Quarter: 2012Q2

REPORT INFORMATION
  Report Type: 
  Country: None (occurrence: None)
  Receive Date: 20120508
  Receipt Date: 20120506
  Transmission Date: 20120825
  Serious: No
  Sender: FDA-Public Use
  Company Number: US-PFIZER INC-2012110718

PATIENT
  Sex: Female
  Weight: 63.492 kg

DRUGS (2)
  1. CHANTIX [Suspect]
     Indication: SMOKING CESSATION THERAPY
     Dosage: 0.5 MG DAILY
     Dates: start: 20120430, end: 20120501
  2. CHANTIX [Suspect]
     Dosage: 0.5 MG, 2X/DAY
     Dates: start: 20120501

REACTIONS (3)
  - RASH [None]
  - ERYTHEMA [None]
  - SKIN EXFOLIATION [None]
